FAERS Safety Report 20436910 (Version 1)
Quarter: 2022Q1

REPORT INFORMATION
  Report Type: Spontaneous
  Country: CN (occurrence: CN)
  Receive Date: 20220207
  Receipt Date: 20220207
  Transmission Date: 20220423
  Serious: Yes (Hospitalization)
  Sender: FDA-Public Use
  Company Number: CN-BoehringerIngelheim-2022-BI-151818

PATIENT
  Age: 61 Year
  Sex: Male
  Weight: 68 kg

DRUGS (3)
  1. GILOTRIF [Suspect]
     Active Substance: AFATINIB
     Indication: Lung neoplasm malignant
     Route: 048
     Dates: start: 20211224, end: 20220102
  2. ENVAFOLIMAB [Suspect]
     Active Substance: ENVAFOLIMAB
     Indication: Lung neoplasm malignant
     Route: 058
     Dates: start: 20211231, end: 20211231
  3. GEMCITABINE HYDROCHLORIDE [Concomitant]
     Active Substance: GEMCITABINE HYDROCHLORIDE
     Indication: Lung neoplasm malignant
     Dosage: FORM OF ADMINISTRATION: POWDER FOR INJECTION
     Route: 042
     Dates: start: 20211231, end: 20211231

REACTIONS (5)
  - Diarrhoea [Recovering/Resolving]
  - Pyrexia [Recovering/Resolving]
  - Nausea [Recovering/Resolving]
  - Abdominal pain [Recovering/Resolving]
  - Haemoptysis [Recovering/Resolving]

NARRATIVE: CASE EVENT DATE: 20220102
